FAERS Safety Report 25367204 (Version 2)
Quarter: 2025Q2

REPORT INFORMATION
  Report Type: Spontaneous
  Country: PH (occurrence: PH)
  Receive Date: 20250528
  Receipt Date: 20250606
  Transmission Date: 20250716
  Serious: Yes (Hospitalization, Other)
  Sender: RANBAXY
  Company Number: PH-SUN PHARMACEUTICAL INDUSTRIES LTD-2025R1-508656

PATIENT
  Sex: Male

DRUGS (1)
  1. ALFUZOSIN [Suspect]
     Active Substance: ALFUZOSIN
     Indication: Urinary tract disorder
     Route: 048

REACTIONS (5)
  - Balance disorder [Unknown]
  - Brain fog [Unknown]
  - Vertigo [Unknown]
  - Vomiting [Unknown]
  - Nausea [Unknown]
